FAERS Safety Report 16847874 (Version 1)
Quarter: 2019Q3

REPORT INFORMATION
  Report Type: Spontaneous
  Country: US (occurrence: US)
  Receive Date: 20190924
  Receipt Date: 20190924
  Transmission Date: 20191005
  Serious: No
  Sender: FDA-Public Use
  Company Number: US-ACORDA-ACO_160392_2019

PATIENT
  Age: 63 Year
  Sex: Female

DRUGS (1)
  1. INBRIJA [Suspect]
     Active Substance: LEVODOPA
     Indication: PARKINSON^S DISEASE
     Dosage: 42 MILLIGRAM, 2 CAPSULES UP TO FIVE TIMES PER DAY AS NEEDED
     Dates: start: 20190804, end: 20190804

REACTIONS (2)
  - Ill-defined disorder [Unknown]
  - Cough [Unknown]

NARRATIVE: CASE EVENT DATE: 20190804
